FAERS Safety Report 25175620 (Version 1)
Quarter: 2025Q2

REPORT INFORMATION
  Report Type: Spontaneous
  Country: US (occurrence: US)
  Receive Date: 20250408
  Receipt Date: 20250408
  Transmission Date: 20250717
  Serious: No
  Sender: MADRIGAL PHARMACEUTICALS
  Company Number: US-MADRIGAL PHARMACEUTICALS, INC-2025REZ1210

PATIENT

DRUGS (3)
  1. REZDIFFRA [Suspect]
     Active Substance: RESMETIROM
     Indication: Hepatic steatosis
     Route: 065
  2. TACROLIMUS [Concomitant]
     Active Substance: TACROLIMUS
  3. JAKAFI [Concomitant]
     Active Substance: RUXOLITINIB
     Indication: Insomnia
     Dosage: 5 MILLIGRAM, BID
     Route: 048
     Dates: start: 202310

REACTIONS (1)
  - Drug hypersensitivity [Unknown]
